FAERS Safety Report 16229653 (Version 1)
Quarter: 2019Q2

REPORT INFORMATION
  Report Type: Spontaneous
  Country: US (occurrence: US)
  Receive Date: 20190423
  Receipt Date: 20190423
  Transmission Date: 20190711
  Serious: No
  Sender: FDA-Public Use
  Company Number: US-BRACCO-2019US01348

PATIENT
  Sex: Male

DRUGS (1)
  1. READI-CAT 2 [Suspect]
     Active Substance: BARIUM SULFATE
     Indication: DIAGNOSTIC PROCEDURE
     Dosage: UNK

REACTIONS (2)
  - Expired product administered [Unknown]
  - No adverse event [Unknown]
